FAERS Safety Report 21468390 (Version 1)
Quarter: 2022Q4

REPORT INFORMATION
  Report Type: Spontaneous
  Country: JP (occurrence: JP)
  Receive Date: 20221017
  Receipt Date: 20221017
  Transmission Date: 20230113
  Serious: Yes (Hospitalization)
  Sender: FDA-Public Use
  Company Number: JP-BRISTOL-MYERS SQUIBB COMPANY-2022-120677

PATIENT
  Age: 74 Year
  Sex: Male

DRUGS (6)
  1. IPILIMUMAB [Suspect]
     Active Substance: IPILIMUMAB
     Indication: Colon cancer
     Dosage: ON 13-JUL-20XX
     Route: 041
  2. IPILIMUMAB [Suspect]
     Active Substance: IPILIMUMAB
     Dosage: ON 03-AUG-20XX
     Route: 041
  3. OPDIVO [Suspect]
     Active Substance: NIVOLUMAB
     Indication: Colon cancer
     Dosage: ON 13-JUL-20XX
     Route: 065
  4. OPDIVO [Suspect]
     Active Substance: NIVOLUMAB
     Dosage: ON 03-AUG-20XX
     Route: 065
  5. OPDIVO [Suspect]
     Active Substance: NIVOLUMAB
     Dosage: ON 14-SEP-20XX
     Route: 065
  6. OPDIVO [Suspect]
     Active Substance: NIVOLUMAB
     Dosage: ON 05-OCT-20XX
     Route: 065

REACTIONS (5)
  - Malaise [Unknown]
  - Blood sodium decreased [Recovered/Resolved]
  - C-reactive protein increased [Recovering/Resolving]
  - Cortisol decreased [Unknown]
  - Pyrexia [Recovered/Resolved]
